FAERS Safety Report 8493667-2 (Version None)
Quarter: 2012Q3

REPORT INFORMATION
  Report Type: 
  Country: None (occurrence: None)
  Receive Date: 20120706
  Receipt Date: 20120618
  Transmission Date: 20120928
  Serious: No
  Sender: FDA-Public Use
  Company Number: US-ASTRAZENECA-2012SE40722

PATIENT
  Sex: Female

DRUGS (3)
  1. NEBULIZER [Concomitant]
     Indication: COUGH
  2. PULMICORT FLEXHALER [Suspect]
     Indication: HYPERSENSITIVITY
     Route: 055
  3. ANTIBIOTICS [Concomitant]
     Indication: COUGH

REACTIONS (2)
  - COUGH [None]
  - OFF LABEL USE [None]
